FAERS Safety Report 5200090-2 (Version None)
Quarter: 2007Q1

REPORT INFORMATION
  Report Type: 
  Country: None (occurrence: None)
  Receive Date: 20070105
  Receipt Date: 20070102
  Transmission Date: 20070707
  Serious: Yes (Hospitalization)
  Sender: FDA-Public Use
  Company Number: FR-GLAXOSMITHKLINE-B0445398A

PATIENT
  Age: 86 Year
  Sex: Male

DRUGS (5)
  1. AUGMENTIN '125' [Suspect]
     Indication: WRIST SURGERY
     Dosage: 2G PER DAY
     Route: 065
     Dates: start: 20060713, end: 20060719
  2. ARCALION [Concomitant]
     Dosage: 2UNIT PER DAY
     Route: 048
     Dates: start: 20060713, end: 20060728
  3. TENSTATEN [Concomitant]
     Dosage: 2TAB PER DAY
     Route: 048
  4. TRIVASTAL [Concomitant]
     Dosage: 1TAB PER DAY
     Route: 048
  5. KALEORID [Concomitant]
     Dosage: 1TAB PER DAY
     Route: 048

REACTIONS (9)
  - ABDOMINAL PAIN UPPER [None]
  - ALANINE AMINOTRANSFERASE INCREASED [None]
  - ASPARTATE AMINOTRANSFERASE INCREASED [None]
  - BLOOD ALKALINE PHOSPHATASE INCREASED [None]
  - CHOLANGITIS [None]
  - DYSPHAGIA [None]
  - HEPATITIS CHOLESTATIC [None]
  - NAUSEA [None]
  - WEIGHT DECREASED [None]
